FAERS Safety Report 19799606 (Version 1)
Quarter: 2021Q3

REPORT INFORMATION
  Report Type: Spontaneous
  Country: CN (occurrence: CN)
  Receive Date: 20210907
  Receipt Date: 20210907
  Transmission Date: 20211014
  Serious: Yes (Other)
  Sender: FDA-Public Use
  Company Number: CN-BAXTER-2021BAX027610

PATIENT
  Age: 67 Year
  Sex: Male
  Weight: 63 kg

DRUGS (5)
  1. 0.9% SODIUM CHLORIDE INJECTION [Suspect]
     Active Substance: SODIUM CHLORIDE
     Dosage: TETANUS ANTITOXIN INJECTION 1500U + 0.9% SODIUM CHLORIDE INJECTION 2ML
     Route: 030
     Dates: start: 20210825, end: 20210825
  2. CEFAZOLIN SODIUM PENTAHYDRATE [Suspect]
     Active Substance: CEFAZOLIN SODIUM
     Indication: SKIN LACERATION
  3. 0.9% SODIUM CHLORIDE INJECTION [Suspect]
     Active Substance: SODIUM CHLORIDE
     Indication: MEDICATION DILUTION
     Dosage: CEFAZOLIN SODIUM PENTAHYDRATE FOR INJECTION 2G + 0.9% SODIUM CHLORIDE INJECTION 250ML
     Route: 041
     Dates: start: 20210825, end: 20210825
  4. CEFAZOLIN SODIUM PENTAHYDRATE [Suspect]
     Active Substance: CEFAZOLIN SODIUM
     Indication: INFECTION PROPHYLAXIS
     Route: 041
     Dates: start: 20210825, end: 20210825
  5. TETANUS ANTITOXIN [Suspect]
     Active Substance: TETANUS ANTITOXIN
     Indication: SKIN LACERATION
     Dosage: 1500U
     Route: 030
     Dates: start: 20210825, end: 20210825

REACTIONS (1)
  - Anaphylactoid reaction [Recovered/Resolved]

NARRATIVE: CASE EVENT DATE: 20210825
